FAERS Safety Report 8570425-1 (Version None)
Quarter: 2012Q3

REPORT INFORMATION
  Report Type: 
  Country: None (occurrence: None)
  Receive Date: 20120803
  Receipt Date: 20120723
  Transmission Date: 20120928
  Serious: Yes (Hospitalization, Other)
  Sender: FDA-Public Use
  Company Number: US-MERCK-1207USA011303

PATIENT

DRUGS (5)
  1. AZOR [Interacting]
     Dosage: 5 MG, QD
     Route: 048
  2. AZOR [Interacting]
     Dosage: 10-40
     Route: 048
  3. ASPIRIN [Concomitant]
  4. METFORMIN HYDROCHLORIDE [Concomitant]
  5. ZOCOR [Suspect]
     Dosage: 20 MG, QD
     Route: 048

REACTIONS (5)
  - FEELING ABNORMAL [None]
  - BALANCE DISORDER [None]
  - BLOOD MAGNESIUM DECREASED [None]
  - DRUG INTERACTION [None]
  - MUSCULAR WEAKNESS [None]
